FAERS Safety Report 4310436-5 (Version None)
Quarter: 2004Q1

REPORT INFORMATION
  Report Type: 
  Country: None (occurrence: None)
  Receive Date: 20040302
  Receipt Date: 20040212
  Transmission Date: 20041129
  Serious: No
  Sender: FDA-Public Use
  Company Number: A01200400686

PATIENT
  Age: 67 Year
  Sex: Male

DRUGS (4)
  1. PLAVIX [Suspect]
     Indication: CEREBROVASCULAR ACCIDENT
     Route: 048
  2. RAMIPRIL [Concomitant]
  3. DIURETICS [Concomitant]
  4. ASPIRIN [Concomitant]

REACTIONS (1)
  - MYELODYSPLASTIC SYNDROME [None]
